FAERS Safety Report 11283614 (Version 1)
Quarter: 2015Q3

REPORT INFORMATION
  Report Type: Spontaneous
  Country: US (occurrence: US)
  Receive Date: 20150720
  Receipt Date: 20150720
  Transmission Date: 20151125
  Serious: No
  Sender: FDA-Public Use
  Company Number: US-PFIZER INC-2015235095

PATIENT
  Age: 59 Year
  Sex: Female
  Weight: 72 kg

DRUGS (7)
  1. PREMARIN [Suspect]
     Active Substance: ESTROGENS, CONJUGATED
     Indication: ATROPHIC VULVOVAGINITIS
     Dosage: 1 G 1-3 TIMES A WEEK
     Dates: start: 20140127
  2. HYDROCHLOROTHIAZIDE- LISINOPRIL [Concomitant]
     Dosage: 12.5 MG-20 MG ONE DAILY
     Route: 048
     Dates: start: 20121212
  3. ACICLOVIR [Concomitant]
     Active Substance: ACYCLOVIR
     Dosage: 400 MG, 3X/DAY
     Route: 048
     Dates: start: 20121212
  4. FLONASE [Concomitant]
     Active Substance: FLUTICASONE PROPIONATE
     Dosage: 50 MCG/INH 2 SPRAYS DAILY
     Dates: start: 20121212
  5. VITAMIN D3 [Concomitant]
     Active Substance: CHOLECALCIFEROL
     Indication: VITAMIN D DEFICIENCY
     Dosage: 1X/DAY (5000 INTL UNITS)
     Dates: start: 20120202
  6. CALCIUM GLUCONATE. [Concomitant]
     Active Substance: CALCIUM GLUCONATE
     Dosage: 500 MG, 3X/DAY
     Route: 048
     Dates: start: 20120202
  7. RED YEAST RICE [Concomitant]
     Active Substance: DIETARY SUPPLEMENT
     Dosage: 600 MG, 2X/DAY
     Route: 048

REACTIONS (1)
  - Cerumen impaction [Unknown]

NARRATIVE: CASE EVENT DATE: 20150513
